FAERS Safety Report 6451436-9 (Version None)
Quarter: 2009Q4

REPORT INFORMATION
  Report Type: 
  Country: None (occurrence: None)
  Receive Date: 20091123
  Receipt Date: 20081023
  Transmission Date: 20100525
  Serious: No
  Sender: FDA-Public Use
  Company Number: US-BRISTOL-MYERS SQUIBB COMPANY-14383293

PATIENT

DRUGS (2)
  1. AVALIDE [Suspect]
  2. SULAR [Concomitant]

REACTIONS (2)
  - PAIN [None]
  - RASH [None]
